FAERS Safety Report 4283571-8 (Version None)
Quarter: 2004Q1

REPORT INFORMATION
  Report Type: 
  Country: None (occurrence: None)
  Receive Date: 20040202
  Receipt Date: 20040123
  Transmission Date: 20041129
  Serious: Yes (Life-Threatening)
  Sender: FDA-Public Use
  Company Number: BR-GLAXOSMITHKLINE-A0495829A

PATIENT
  Age: 62 Year
  Sex: Female

DRUGS (6)
  1. LAMIVUDINE [Suspect]
     Indication: HEPATITIS B
     Dosage: 100MG PER DAY
     Route: 048
     Dates: start: 20031201
  2. ENTECAVIR [Suspect]
     Indication: HEPATITIS B
     Dosage: 1MG PER DAY
     Route: 048
     Dates: start: 20031201
  3. SIMETHICONE [Concomitant]
     Dates: start: 20031220, end: 20040103
  4. DOMPERIDONE [Concomitant]
     Dates: start: 20031215
  5. ACETAMINOPHEN [Concomitant]
     Dates: start: 20031227
  6. BACH FLOWER REMEDIES [Concomitant]

REACTIONS (2)
  - ALANINE AMINOTRANSFERASE INCREASED [None]
  - THROMBOCYTOPENIC PURPURA [None]
